FAERS Safety Report 25738446 (Version 1)
Quarter: 2025Q3

REPORT INFORMATION
  Report Type: Spontaneous
  Country: CA (occurrence: CA)
  Receive Date: 20250829
  Receipt Date: 20250829
  Transmission Date: 20251020
  Serious: Yes (Hospitalization, Other)
  Sender: BRISTOL-MYERS SQUIBB COMPANY
  Company Number: EU-BRISTOL-MYERS SQUIBB COMPANY-BMS-2021-041828

PATIENT
  Age: 77 Year
  Sex: Male

DRUGS (3)
  1. NIVOLUMAB [Interacting]
     Active Substance: NIVOLUMAB
     Indication: Metastatic renal cell carcinoma
     Dosage: 240 MILLIGRAM, Q3WK
     Route: 042
  2. NELVUTAMIG [Interacting]
     Active Substance: NELVUTAMIG
     Indication: Metastatic renal cell carcinoma
     Route: 042
  3. INFLUENZA VIRUS VACCINE [Interacting]
     Active Substance: INFLUENZA VIRUS VACCINE
     Indication: Influenza immunisation

REACTIONS (5)
  - Myocarditis [Unknown]
  - Pulmonary hypertension [Unknown]
  - Pruritus [Unknown]
  - Urticaria [Unknown]
  - Drug interaction [Unknown]
